FAERS Safety Report 8775249 (Version 5)
Quarter: 2012Q4

REPORT INFORMATION
  Report Type: 
  Country: CO (occurrence: CO)
  Receive Date: 20120910
  Receipt Date: 20121106
  Transmission Date: 20130627
  Serious: Yes (Other)
  Sender: FDA-Public Use
  Company Number: CO-AMGEN-COLSP2012056110

PATIENT
  Age: 41 Year
  Sex: Female

DRUGS (13)
  1. ENBREL [Suspect]
     Indication: RHEUMATOID ARTHRITIS
     Dosage: 50 mg, weekly
     Route: 058
     Dates: start: 201108
  2. LEVETIRACETAM [Suspect]
     Indication: EPILEPSY
     Dosage: 500 mg, 3x/day
     Route: 048
     Dates: start: 201204
  3. LEVETIRACETAM [Suspect]
     Dosage: 500 mg, 4x/day (2 in the morning and 2 at night)
     Route: 048
     Dates: start: 201204
  4. CARBAMAZEPINE [Suspect]
     Indication: EPILEPSY
     Dosage: 200 mg, 2x/day at night
     Route: 048
     Dates: start: 2004, end: 201204
  5. ACETAMINOPHEN [Concomitant]
     Indication: PAIN
     Dosage: UNK, as needed
     Route: 048
  6. ACETAMINOPHEN [Concomitant]
     Indication: HEADACHE
     Dosage: as necessary
     Route: 048
  7. ACETAMINOPHEN [Concomitant]
     Dosage: UNK
     Route: 048
  8. TRAZODONE [Concomitant]
     Indication: EPILEPSY
     Dosage: 50 mg, 1x/day at night
     Route: 065
  9. METHOTREXATE [Concomitant]
     Indication: RHEUMATOID ARTHRITIS
     Dosage: 2,5mg 8 times per week
     Route: 065
  10. SULFASALAZINE [Concomitant]
     Indication: RHEUMATOID ARTHRITIS
     Dosage: 500 mg, 2x/week
     Route: 065
  11. PREDNISOLON                        /00016201/ [Concomitant]
     Indication: RHEUMATOID ARTHRITIS
     Dosage: 5 mg, 1x/day
     Route: 065
  12. LEFLUNOMIDE [Concomitant]
     Indication: RHEUMATOID ARTHRITIS
     Dosage: 20 mg, 1x/day
     Route: 065
  13. FOLIC ACID [Concomitant]
     Dosage: 8 per week
     Route: 065

REACTIONS (16)
  - Vaginal haemorrhage [Recovered/Resolved]
  - Hormone level abnormal [Recovering/Resolving]
  - Headache [Unknown]
  - Nausea [Unknown]
  - Vomiting [Unknown]
  - Muscle spasms [Unknown]
  - Somnolence [Recovering/Resolving]
  - Syncope [Not Recovered/Not Resolved]
  - Malaise [Unknown]
  - Dizziness [Not Recovered/Not Resolved]
  - Dyspnoea [Not Recovered/Not Resolved]
  - Depressed mood [Not Recovered/Not Resolved]
  - Fatigue [Unknown]
  - Menopause [Unknown]
  - Circumstance or information capable of leading to medication error [Unknown]
  - Convulsion [Recovering/Resolving]
